FAERS Safety Report 17545926 (Version 9)
Quarter: 2022Q4

REPORT INFORMATION
  Report Type: Spontaneous
  Country: US (occurrence: US)
  Receive Date: 20200316
  Receipt Date: 20221228
  Transmission Date: 20230113
  Serious: Yes (Hospitalization, Other)
  Sender: FDA-Public Use
  Company Number: US-PFIZER INC-2020111346

PATIENT
  Age: 70 Year
  Sex: Female

DRUGS (3)
  1. XELJANZ XR [Suspect]
     Active Substance: TOFACITINIB CITRATE
     Indication: Rheumatoid arthritis
     Dosage: 11 MG, 1X/DAY
     Route: 048
     Dates: start: 201905
  2. XELJANZ XR [Suspect]
     Active Substance: TOFACITINIB CITRATE
     Dosage: 11 MG, 1X/DAY
     Route: 048
     Dates: start: 201908
  3. XELJANZ XR [Suspect]
     Active Substance: TOFACITINIB CITRATE
     Dosage: 11 MG, 1X/DAY
     Route: 048

REACTIONS (14)
  - Rheumatoid arthritis [Unknown]
  - Lower limb fracture [Unknown]
  - Knee arthroplasty [Unknown]
  - Musculoskeletal discomfort [Unknown]
  - Neck surgery [Unknown]
  - Surgery [Unknown]
  - Nightmare [Unknown]
  - Disease recurrence [Unknown]
  - Feeling abnormal [Unknown]
  - Depression [Unknown]
  - Hypertension [Unknown]
  - Blood cholesterol increased [Unknown]
  - Head discomfort [Unknown]
  - Injury [Unknown]

NARRATIVE: CASE EVENT DATE: 20200101
